FAERS Safety Report 6661224-6 (Version None)
Quarter: 2010Q1

REPORT INFORMATION
  Report Type: 
  Country: None (occurrence: None)
  Receive Date: 20100331
  Receipt Date: 20100319
  Transmission Date: 20100710
  Serious: Yes (Other)
  Sender: FDA-Public Use
  Company Number: DE-ROCHE-693735

PATIENT
  Sex: Female
  Weight: 70 kg

DRUGS (9)
  1. ACTEMRA [Suspect]
     Indication: RHEUMATOID ARTHRITIS
     Dosage: GIVEN ONCE
     Route: 042
     Dates: start: 20090922, end: 20090922
  2. ARAVA [Concomitant]
     Indication: RHEUMATOID ARTHRITIS
     Route: 048
     Dates: start: 20061001
  3. IBUPROFEN [Concomitant]
     Dosage: GIVEN FOR A LONG TIME
  4. PREDNISOLON [Concomitant]
     Dosage: GIVEN FOR A LONG TIME
  5. CALCIUM NOS [Concomitant]
     Dosage: GIVEN FOR A LONG TIME
  6. ASPIRIN [Concomitant]
     Dosage: GIVEN FOR A LONG TIME
  7. OMEPRAZOLE [Concomitant]
     Dosage: GIVEN FOR A LONG TIME
  8. SIMVASTATIN [Concomitant]
     Dosage: GIVEN FOR A LONG TIME
  9. REMIFEMIN [Concomitant]
     Dosage: GIVEN FOR A LONG TIME

REACTIONS (3)
  - DYSPHAGIA [None]
  - RASH PUSTULAR [None]
  - RASH VESICULAR [None]
